FAERS Safety Report 12729007 (Version 2)
Quarter: 2016Q4

REPORT INFORMATION
  Report Type: Report from Study
  Country: KR (occurrence: KR)
  Receive Date: 20160909
  Receipt Date: 20161010
  Transmission Date: 20170207
  Serious: Yes (Other)
  Sender: FDA-Public Use
  Company Number: PHHY2016KR124039

PATIENT
  Age: 61 Year
  Sex: Male

DRUGS (5)
  1. ONBREZ BREEZHALER [Suspect]
     Active Substance: INDACATEROL
     Indication: CHRONIC OBSTRUCTIVE PULMONARY DISEASE
     Dosage: 150 UG, UNK
     Route: 055
     Dates: start: 20151022
  2. GASMOTIN [Concomitant]
     Active Substance: MOSAPRIDE CITRATE
     Indication: PROPHYLAXIS
     Dosage: 5 MG, TID
     Route: 065
     Dates: start: 20151022, end: 20160118
  3. SPIRIVA [Concomitant]
     Active Substance: TIOTROPIUM BROMIDE MONOHYDRATE
     Indication: CHRONIC OBSTRUCTIVE PULMONARY DISEASE
     Dosage: 2.5 UG, QD
     Route: 065
     Dates: start: 20151022, end: 20160530
  4. ONSERAN [Concomitant]
     Indication: TONSIL CANCER
     Dosage: 8 MG, TID
     Route: 065
     Dates: start: 20160428, end: 20160502
  5. VENTOLIN [Concomitant]
     Active Substance: ALBUTEROL SULFATE
     Indication: CHRONIC OBSTRUCTIVE PULMONARY DISEASE
     Dosage: 100 UG, QOD
     Route: 065
     Dates: start: 20160328, end: 20160819

REACTIONS (2)
  - Feeling abnormal [Recovered/Resolved]
  - Tongue paralysis [Recovered/Resolved]

NARRATIVE: CASE EVENT DATE: 20151119
